FAERS Safety Report 7096077-8 (Version None)
Quarter: 2010Q4

REPORT INFORMATION
  Report Type: 
  Country: None (occurrence: None)
  Receive Date: 20101101
  Receipt Date: 20101025
  Transmission Date: 20110411
  Serious: Yes (Life-Threatening)
  Sender: FDA-Public Use
  Company Number: 2010US004428

PATIENT
  Age: 73 Year
  Sex: Male

DRUGS (6)
  1. AMBISOME [Suspect]
     Indication: SYSTEMIC MYCOSIS
     Dosage: 250 MG, UID/QD, IV NOS
     Route: 042
     Dates: start: 20100907, end: 20100918
  2. VFEND [Concomitant]
  3. GABAPENTIN [Concomitant]
  4. AMITRIPTYLINE HCL [Concomitant]
  5. TOPIRAMATE [Concomitant]
  6. VOLTAREN [Concomitant]

REACTIONS (7)
  - DISSEMINATED INTRAVASCULAR COAGULATION [None]
  - GENERAL PHYSICAL HEALTH DETERIORATION [None]
  - HYPOALBUMINAEMIA [None]
  - HYPOKALAEMIA [None]
  - MALNUTRITION [None]
  - PANCYTOPENIA [None]
  - SEPTIC SHOCK [None]
